FAERS Safety Report 24400140 (Version 2)
Quarter: 2024Q4

REPORT INFORMATION
  Report Type: Spontaneous
  Country: US (occurrence: US)
  Receive Date: 20241005
  Receipt Date: 20241009
  Transmission Date: 20250114
  Serious: Yes (Death, Life-Threatening, Hospitalization, Other)
  Sender: GLENMARK
  Company Number: US-GLENMARK PHARMACEUTICALS-2024GMK094430

PATIENT

DRUGS (2)
  1. THEOPHYLLINE [Suspect]
     Active Substance: THEOPHYLLINE
     Indication: Chronic obstructive pulmonary disease
     Dosage: UNK
     Route: 065
  2. THEOPHYLLINE [Suspect]
     Active Substance: THEOPHYLLINE
     Indication: Asthma

REACTIONS (10)
  - Drug level increased [Fatal]
  - Shock [Fatal]
  - Atrial fibrillation [Fatal]
  - Vasoplegia syndrome [Fatal]
  - Nausea [Fatal]
  - Pulse absent [Recovered/Resolved]
  - Hypoxia [Fatal]
  - Disseminated intravascular coagulation [Fatal]
  - Generalised tonic-clonic seizure [Fatal]
  - Toxicity to various agents [Fatal]
